FAERS Safety Report 5466820-X (Version None)
Quarter: 2007Q3

REPORT INFORMATION
  Report Type: 
  Country: None (occurrence: None)
  Receive Date: 20070920
  Receipt Date: 20070821
  Transmission Date: 20080115
  Serious: Yes (Life-Threatening, Hospitalization)
  Sender: FDA-Public Use
  Company Number: 6029097

PATIENT
  Age: 64 Year
  Sex: Female

DRUGS (7)
  1. SOTALOL HCL [Suspect]
     Indication: ATRIAL FIBRILLATION
  2. VERAPAMIL [Suspect]
     Indication: ATRIAL FIBRILLATION
     Dosage: 240 MG (80 MG, 3 IN 1 D)
  3. DIGOXIN [Suspect]
     Indication: ATRIAL FIBRILLATION
  4. CO-AMILOFRUSE (FUROSEMIDE, AMILORIDE HYDROCHLORIDE) [Concomitant]
  5. PERINDOPRIL ERBUMINE [Concomitant]
  6. WARFARIN SODIUM [Concomitant]
  7. FRUMIL (FUROSEMIDE, AMILORIDE HYDROCHLORIDE) [Concomitant]

REACTIONS (19)
  - ABDOMINAL TENDERNESS [None]
  - ATRIAL FIBRILLATION [None]
  - BRADYCARDIA [None]
  - CARDIAC FAILURE [None]
  - CARDIOACTIVE DRUG LEVEL DECREASED [None]
  - CARDIOMEGALY [None]
  - DEPRESSED LEVEL OF CONSCIOUSNESS [None]
  - DRUG INTERACTION [None]
  - DRUG TOXICITY [None]
  - DYSPNOEA [None]
  - GASTROINTESTINAL SOUNDS ABNORMAL [None]
  - HEPATIC ENZYME INCREASED [None]
  - HYPOTENSION [None]
  - INTERNATIONAL NORMALISED RATIO INCREASED [None]
  - LIVEDO RETICULARIS [None]
  - LIVER FUNCTION TEST ABNORMAL [None]
  - METABOLIC ACIDOSIS [None]
  - PULSE ABSENT [None]
  - RENAL FAILURE [None]
